FAERS Safety Report 4788243-9 (Version None)
Quarter: 2005Q4

REPORT INFORMATION
  Report Type: 
  Country: None (occurrence: None)
  Receive Date: 20051005
  Receipt Date: 20050927
  Transmission Date: 20060501
  Serious: Yes (Hospitalization)
  Sender: FDA-Public Use
  Company Number: PHHO2005BR15472

PATIENT
  Age: 11 Year
  Sex: Male
  Weight: 37 kg

DRUGS (2)
  1. ZELMAC / HTF 919A [Suspect]
     Indication: CONSTIPATION
     Route: 048
     Dates: start: 20050701, end: 20050701
  2. PLANTABEN [Concomitant]

REACTIONS (3)
  - COLITIS ULCERATIVE [None]
  - DIARRHOEA HAEMORRHAGIC [None]
  - WEIGHT DECREASED [None]
